FAERS Safety Report 6048379-1 (Version None)
Quarter: 2009Q1

REPORT INFORMATION
  Report Type: 
  Country: None (occurrence: None)
  Receive Date: 20090121
  Receipt Date: 20090121
  Transmission Date: 20090719
  Serious: No
  Sender: FDA-Public Use
  Company Number: None

PATIENT

DRUGS (1)
  1. IC-GREEN [Suspect]
     Indication: ANGIOGRAM CEREBRAL
     Dosage: 25 MG ONCE INTRACEREBRAL
     Route: 018
     Dates: start: 20090112, end: 20090113

REACTIONS (2)
  - DRUG INEFFECTIVE [None]
  - PROCEDURAL COMPLICATION [None]
